FAERS Safety Report 4529997-6 (Version None)
Quarter: 2004Q4

REPORT INFORMATION
  Report Type: 
  Country: None (occurrence: None)
  Receive Date: 20041217
  Receipt Date: 20041206
  Transmission Date: 20050328
  Serious: Yes (Hospitalization)
  Sender: FDA-Public Use
  Company Number: GB-JNJFOC-20041101067

PATIENT
  Sex: Female

DRUGS (4)
  1. RISPERDAL CONSTA [Suspect]
     Indication: SCHIZOPHRENIA
     Route: 030
  2. TETRABENAZINE [Concomitant]
  3. TETRABENAZINE [Concomitant]
  4. CIPRAMIL [Concomitant]

REACTIONS (2)
  - FALL [None]
  - TARDIVE DYSKINESIA [None]
